FAERS Safety Report 10396007 (Version 1)
Quarter: 2014Q3

REPORT INFORMATION
  Report Type: Spontaneous
  Country: GB (occurrence: GB)
  Receive Date: 20140820
  Receipt Date: 20140820
  Transmission Date: 20150326
  Serious: Yes (Other)
  Sender: FDA-Public Use
  Company Number: PHHY2014GB099265

PATIENT
  Age: 49 Year
  Sex: Female
  Weight: 53.97 kg

DRUGS (2)
  1. METRONIDAZOLE. [Suspect]
     Active Substance: METRONIDAZOLE
     Indication: ABSCESS
     Dosage: PRESCRIBED DOSE OF 21 TABLETS.
     Route: 048
     Dates: start: 20140727, end: 20140728
  2. CLARITHROMYCIN. [Concomitant]
     Active Substance: CLARITHROMYCIN

REACTIONS (4)
  - Eye pain [Recovering/Resolving]
  - Dysgeusia [Recovering/Resolving]
  - Optic neuritis [Recovering/Resolving]
  - Somnolence [Recovering/Resolving]

NARRATIVE: CASE EVENT DATE: 20140727
